FAERS Safety Report 9262761 (Version 1)
Quarter: 2013Q2

REPORT INFORMATION
  Report Type: Spontaneous
  Country: US (occurrence: None)
  Receive Date: 20130426
  Receipt Date: 20130426
  Transmission Date: 20140414
  Serious: Yes (Other)
  Sender: FDA-Public Use
  Company Number: ADR-201357052

PATIENT
  Age: 75 Year
  Sex: Female

DRUGS (4)
  1. SERTRALINE HCL [Suspect]
     Indication: DEPRESSION
  2. LEVODOPA/CARBIDOPA/ENTACAPONE [Concomitant]
  3. AMANTADINE [Concomitant]
  4. RASAGILINE [Concomitant]

REACTIONS (1)
  - Encephalopathy [None]
